FAERS Safety Report 7412836-3 (Version None)
Quarter: 2011Q2

REPORT INFORMATION
  Report Type: 
  Country: None (occurrence: None)
  Receive Date: 20110413
  Receipt Date: 20110406
  Transmission Date: 20111010
  Serious: Yes (Hospitalization)
  Sender: FDA-Public Use
  Company Number: B0711760A

PATIENT
  Age: 50 Year
  Sex: Female

DRUGS (3)
  1. CRAVIT [Concomitant]
     Route: 065
  2. LAMICTAL [Suspect]
     Route: 048
  3. VALPROATE SODIUM [Concomitant]
     Route: 048

REACTIONS (1)
  - OCULOMUCOCUTANEOUS SYNDROME [None]
